FAERS Safety Report 9732269 (Version 1)
Quarter: 2013Q4

REPORT INFORMATION
  Report Type: Spontaneous
  Country: FR (occurrence: FR)
  Receive Date: 20131205
  Receipt Date: 20131205
  Transmission Date: 20140711
  Serious: Yes (Hospitalization)
  Sender: FDA-Public Use
  Company Number: FR-ELI_LILLY_AND_COMPANY-FR201311007727

PATIENT
  Age: 53 Year
  Sex: Male

DRUGS (3)
  1. ALIMTA [Suspect]
     Indication: ADENOCARCINOMA
     Dosage: 840 MG, UNKNOWN
     Route: 042
     Dates: start: 20120717, end: 20120904
  2. CISPLATINE [Suspect]
     Indication: ADENOCARCINOMA
     Dosage: 125 MG, UNKNOWN
     Route: 042
     Dates: start: 20120717, end: 20120904
  3. AVASTIN [Suspect]
     Indication: ADENOCARCINOMA
     Dosage: 780 MG, UNKNOWN
     Route: 042
     Dates: start: 20120717, end: 20120904

REACTIONS (3)
  - Pneumothorax [Unknown]
  - Cerebral thrombosis [Recovered/Resolved]
  - Off label use [Unknown]
